FAERS Safety Report 18426357 (Version 1)
Quarter: 2020Q4

REPORT INFORMATION
  Report Type: Spontaneous
  Country: US (occurrence: US)
  Receive Date: 20201026
  Receipt Date: 20201026
  Transmission Date: 20210114
  Serious: No
  Sender: FDA-Public Use
  Company Number: None

PATIENT
  Age: 39 Year
  Sex: Female
  Weight: 87.3 kg

DRUGS (1)
  1. BUPROPION XLR 300 MG [Suspect]
     Active Substance: BUPROPION HYDROCHLORIDE
     Indication: DEPRESSION
     Route: 048
     Dates: start: 20180601, end: 20201010

REACTIONS (8)
  - Product substitution issue [None]
  - Mood altered [None]
  - Impaired work ability [None]
  - Depression [None]
  - Dysarthria [None]
  - Gait disturbance [None]
  - Weight increased [None]
  - Sedation [None]

NARRATIVE: CASE EVENT DATE: 20201010
